FAERS Safety Report 8030299-4 (Version None)
Quarter: 2012Q1

REPORT INFORMATION
  Report Type: 
  Country: None (occurrence: None)
  Receive Date: 20120109
  Receipt Date: 20120103
  Transmission Date: 20120608
  Serious: Yes (Other)
  Sender: FDA-Public Use
  Company Number: PHHY2011US32023

PATIENT
  Sex: Female

DRUGS (4)
  1. GLUCOPHAGE [Concomitant]
     Indication: TYPE 2 DIABETES MELLITUS
  2. SYNTHROID [Concomitant]
     Indication: HYPOTHYROIDISM
  3. RITALIN [Concomitant]
     Indication: FATIGUE
  4. GILENYA [Suspect]
     Indication: MULTIPLE SCLEROSIS
     Dosage: 0.5 MG, DAILY
     Route: 048
     Dates: start: 20110211, end: 20110403

REACTIONS (11)
  - HAEMATOCRIT DECREASED [None]
  - DIZZINESS [None]
  - WHITE BLOOD CELL COUNT DECREASED [None]
  - CHROMATURIA [None]
  - CHEST PAIN [None]
  - JAUNDICE [None]
  - RED BLOOD CELL COUNT DECREASED [None]
  - HEPATITIS [None]
  - LIVER FUNCTION TEST ABNORMAL [None]
  - NAUSEA [None]
  - FATIGUE [None]
